FAERS Safety Report 6081923-7 (Version None)
Quarter: 2009Q1

REPORT INFORMATION
  Report Type: 
  Country: None (occurrence: None)
  Receive Date: 20090218
  Receipt Date: 20080613
  Transmission Date: 20090719
  Serious: No
  Sender: FDA-Public Use
  Company Number: US-BRISTOL-MYERS SQUIBB COMPANY-14227714

PATIENT
  Age: 63 Year
  Sex: Female
  Weight: 52 kg

DRUGS (3)
  1. METFORMIN HCL [Suspect]
     Indication: TYPE 2 DIABETES MELLITUS
     Dates: start: 20040101
  2. SYNTHROID [Concomitant]
  3. KLONOPIN [Concomitant]

REACTIONS (1)
  - WEIGHT DECREASED [None]
